FAERS Safety Report 9102358 (Version 1)
Quarter: 2013Q1

REPORT INFORMATION
  Report Type: Report from Study
  Country: US (occurrence: US)
  Receive Date: 20130219
  Receipt Date: 20130219
  Transmission Date: 20140127
  Serious: Yes (Hospitalization, Disabling)
  Sender: FDA-Public Use
  Company Number: US-JNJFOC-20130206936

PATIENT
  Sex: Female
  Weight: 48.2 kg

DRUGS (7)
  1. REMICADE [Suspect]
     Indication: INFLAMMATORY BOWEL DISEASE
     Route: 042
     Dates: start: 20080627, end: 20081202
  2. CIMZIA [Concomitant]
  3. ANTIBIOTICS [Concomitant]
     Indication: INFLAMMATORY BOWEL DISEASE
  4. BIRTH CONTROL PILL [Concomitant]
  5. LOPERAMIDE [Concomitant]
  6. OMEPRAZOLE [Concomitant]
  7. ZOFRAN [Concomitant]

REACTIONS (1)
  - Enteritis [Recovered/Resolved]
